FAERS Safety Report 5981701-0 (Version None)
Quarter: 2008Q4

REPORT INFORMATION
  Report Type: 
  Country: None (occurrence: None)
  Receive Date: 20081205
  Receipt Date: 20081128
  Transmission Date: 20090506
  Serious: Yes (Death)
  Sender: FDA-Public Use
  Company Number: IT-ELI_LILLY_AND_COMPANY-IT200803004955

PATIENT
  Sex: Male
  Weight: 68 kg

DRUGS (3)
  1. ZYPREXA [Suspect]
     Indication: DEPRESSION
     Dosage: 2.5 MG, 2/D
     Route: 048
     Dates: start: 20071027
  2. WARFARIN SODIUM [Concomitant]
     Dosage: 2.5 MG, DAILY (1/D)
     Route: 048
     Dates: start: 20030401
  3. RYTMONORM [Concomitant]
     Dosage: 300 MG, DAILY (1/D)
     Route: 048

REACTIONS (4)
  - AGITATION [None]
  - COMPLETED SUICIDE [None]
  - INSOMNIA [None]
  - RESTLESSNESS [None]
